FAERS Safety Report 13810004 (Version 2)
Quarter: 2017Q3

REPORT INFORMATION
  Report Type: Report from Study
  Country: US (occurrence: US)
  Receive Date: 20170728
  Receipt Date: 20170729
  Transmission Date: 20171127
  Serious: No
  Sender: FDA-Public Use
  Company Number: US-AMGEN-USASL2017084217

PATIENT
  Age: 76 Year
  Sex: Female
  Weight: 96.16 kg

DRUGS (4)
  1. PLAVIX [Suspect]
     Active Substance: CLOPIDOGREL BISULFATE
     Indication: CAROTID ENDARTERECTOMY
     Dosage: 75 MG, QD
     Route: 065
     Dates: start: 20130930
  2. REPATHA [Suspect]
     Active Substance: EVOLOCUMAB
     Indication: HYPERCHOLESTEROLAEMIA
     Dosage: 140 MG/ML, Q2WK
     Route: 058
     Dates: start: 20160818
  3. ASPIRIN. [Suspect]
     Active Substance: ASPIRIN
     Indication: STENT PLACEMENT
     Dosage: 81 MG, QD
     Route: 065
     Dates: start: 20160809
  4. REPATHA [Suspect]
     Active Substance: EVOLOCUMAB
     Indication: TYPE V HYPERLIPIDAEMIA

REACTIONS (1)
  - Injection site bruising [Unknown]
